FAERS Safety Report 9106532 (Version 1)
Quarter: 2013Q1

REPORT INFORMATION
  Report Type: Spontaneous
  Country: FR (occurrence: FR)
  Receive Date: 20130221
  Receipt Date: 20130221
  Transmission Date: 20140127
  Serious: Yes (Hospitalization, Other)
  Sender: FDA-Public Use
  Company Number: FR-ELI_LILLY_AND_COMPANY-FR201302003177

PATIENT
  Age: 40 Year
  Sex: Female
  Weight: 81 kg

DRUGS (4)
  1. ZYPREXA [Suspect]
     Indication: ANXIETY
     Dosage: 5 MG, UNK
     Route: 048
  2. TERCIAN [Concomitant]
     Indication: ANXIETY
     Dosage: 25 MG, BID
     Route: 065
  3. VARNOLINE [Concomitant]
     Indication: CONTRACEPTION
     Dosage: 1 DF, QD
     Route: 065
     Dates: end: 20121129
  4. ALPRAZOLAM [Concomitant]
     Dosage: 1 DF, UNKNOWN
     Route: 065

REACTIONS (9)
  - Deep vein thrombosis [Recovering/Resolving]
  - Pulmonary embolism [Recovering/Resolving]
  - Syncope [Unknown]
  - Blood pressure abnormal [Unknown]
  - C-reactive protein increased [Unknown]
  - Influenza [Unknown]
  - Very low density lipoprotein increased [Unknown]
  - Blood triglycerides increased [Unknown]
  - Blood glucose increased [Unknown]
